FAERS Safety Report 21341928 (Version 1)
Quarter: 2022Q3

REPORT INFORMATION
  Report Type: Spontaneous
  Country: CA (occurrence: CA)
  Receive Date: 20220916
  Receipt Date: 20220916
  Transmission Date: 20221027
  Serious: Yes (Hospitalization, Other)
  Sender: FDA-Public Use
  Company Number: CA-PFIZER INC-202201151021

PATIENT
  Age: 72 Year
  Sex: Female

DRUGS (11)
  1. PIPERACILLIN SODIUM\TAZOBACTAM SODIUM [Suspect]
     Active Substance: PIPERACILLIN SODIUM\TAZOBACTAM SODIUM
     Indication: COVID-19 pneumonia
     Dosage: 3000 MG, 4X/DAY
     Route: 042
  2. DOXYCYCLINE HYCLATE [Suspect]
     Active Substance: DOXYCYCLINE HYCLATE
     Indication: COVID-19 pneumonia
     Dosage: 100 MG, 2X/DAY, DURATION: 7 DAY
     Route: 048
  3. LEVAQUIN [Suspect]
     Active Substance: LEVOFLOXACIN
     Indication: COVID-19 pneumonia
     Dosage: 750 MG, 1X/DAY
     Route: 048
  4. ROCEPHIN [Suspect]
     Active Substance: CEFTRIAXONE SODIUM
     Indication: COVID-19 pneumonia
     Dosage: 2 G, 1X/DAY
     Route: 042
  5. ALENDRONATE [Concomitant]
     Active Substance: ALENDRONATE SODIUM
  6. AMITRIPTYLINE [Concomitant]
     Active Substance: AMITRIPTYLINE
  7. AMLODIPINE [Concomitant]
     Active Substance: AMLODIPINE BESYLATE
     Route: 065
  8. CALCIUM [Concomitant]
     Active Substance: CALCIUM
  9. HYDROCHLOROTHIAZIDE [Concomitant]
     Active Substance: HYDROCHLOROTHIAZIDE
  10. IRBESARTAN [Concomitant]
     Active Substance: IRBESARTAN
     Route: 065
  11. VITAMIN D NOS [Concomitant]
     Active Substance: VITAMIN D NOS

REACTIONS (1)
  - Clostridium difficile colitis [Recovered/Resolved]
